FAERS Safety Report 5464229-6 (Version None)
Quarter: 2007Q3

REPORT INFORMATION
  Report Type: 
  Country: None (occurrence: None)
  Receive Date: 20070921
  Receipt Date: 20070911
  Transmission Date: 20080115
  Serious: Yes (Other)
  Sender: FDA-Public Use
  Company Number: US-ELI_LILLY_AND_COMPANY-US200709002091

PATIENT
  Age: 24 Year
  Sex: Male

DRUGS (3)
  1. HUMULIN R [Suspect]
     Dates: start: 20060101
  2. HUMULIN R [Suspect]
     Dates: start: 20060101
  3. HUMULIN N [Suspect]

REACTIONS (4)
  - AMNESIA [None]
  - BLOOD GLUCOSE DECREASED [None]
  - DRUG INEFFECTIVE [None]
  - ROAD TRAFFIC ACCIDENT [None]
